FAERS Safety Report 5132002-4 (Version None)
Quarter: 2006Q4

REPORT INFORMATION
  Report Type: 
  Country: None (occurrence: None)
  Receive Date: 20061017
  Receipt Date: 20061004
  Transmission Date: 20070319
  Serious: Yes (Other)
  Sender: FDA-Public Use
  Company Number: 2006124623

PATIENT
  Age: 22 Year
  Sex: Male
  Weight: 120.2032 kg

DRUGS (2)
  1. CELEBREX [Suspect]
     Indication: BACK PAIN
     Dosage: 1 D
  2. CELEBREX [Suspect]
     Indication: MUSCULOSKELETAL PAIN
     Dosage: 1 D

REACTIONS (3)
  - CHEST PAIN [None]
  - HYPERTENSION [None]
  - RENAL DISORDER [None]
